FAERS Safety Report 5662323-8 (Version None)
Quarter: 2008Q1

REPORT INFORMATION
  Report Type: 
  Country: None (occurrence: None)
  Receive Date: 20080312
  Receipt Date: 20080229
  Transmission Date: 20080703
  Serious: Yes (Other)
  Sender: FDA-Public Use
  Company Number: JP-PFIZER INC-2008019897

PATIENT

DRUGS (1)
  1. ZITHROMAX [Suspect]

REACTIONS (3)
  - ACIDOSIS [None]
  - DRUG EXPOSURE DURING PREGNANCY [None]
  - VOMITING NEONATAL [None]
